FAERS Safety Report 5737666-X (Version None)
Quarter: 2008Q2

REPORT INFORMATION
  Report Type: 
  Country: None (occurrence: None)
  Receive Date: 20080512
  Receipt Date: 20080512
  Transmission Date: 20081010
  Serious: Yes (Life-Threatening)
  Sender: FDA-Public Use
  Company Number: None

PATIENT
  Age: 90 Year
  Sex: Female
  Weight: 44.4525 kg

DRUGS (2)
  1. DIGITEK  NO LONGER HAVE LABEL  ACTAVIS TOTOWA LLC [Suspect]
     Indication: ARRHYTHMIA
     Dosage: ?  DAILY PO
     Route: 048
  2. DIGITEK  NO LONGER HAVE LABEL  ACTAVIS TOTOWA LLC [Suspect]
     Indication: HYPERTENSION
     Dosage: ?  DAILY PO
     Route: 048

REACTIONS (6)
  - FALL [None]
  - INCORRECT DOSE ADMINISTERED [None]
  - LOWER LIMB FRACTURE [None]
  - MUSCULOSKELETAL PAIN [None]
  - PHARMACEUTICAL PRODUCT COMPLAINT [None]
  - QUALITY OF LIFE DECREASED [None]
